FAERS Safety Report 10131539 (Version 1)
Quarter: 2014Q2

REPORT INFORMATION
  Report Type: Spontaneous
  Country: TR (occurrence: TR)
  Receive Date: 20140428
  Receipt Date: 20140428
  Transmission Date: 20141212
  Serious: Yes (Death, Life-Threatening, Other)
  Sender: FDA-Public Use
  Company Number: TR-ROXANE LABORATORIES, INC.-2014-RO-00651RO

PATIENT
  Age: 67 Year
  Sex: Male

DRUGS (2)
  1. SERTRALINE [Suspect]
     Indication: MAJOR DEPRESSION
     Dosage: 100 MG
     Route: 065
  2. MIRTAZAPINE [Suspect]
     Indication: MAJOR DEPRESSION
     Dosage: 15 MG
     Route: 065

REACTIONS (5)
  - Death [Fatal]
  - Cardiac arrest [Recovered/Resolved]
  - Ventricular fibrillation [Recovered/Resolved]
  - Respiratory arrest [Unknown]
  - Electrocardiogram QT prolonged [Unknown]
